FAERS Safety Report 4725509-2 (Version None)
Quarter: 2005Q3

REPORT INFORMATION
  Report Type: 
  Country: None (occurrence: None)
  Receive Date: 20050727
  Receipt Date: 20050721
  Transmission Date: 20060218
  Serious: Yes (Other)
  Sender: FDA-Public Use
  Company Number: FR-BRACCO-BRO-008935

PATIENT

DRUGS (1)
  1. IOPAMIDOL [Suspect]
     Route: 042

REACTIONS (4)
  - ARTHRITIS [None]
  - EXTRAVASATION [None]
  - MEDICATION ERROR [None]
  - TENDONITIS [None]
